FAERS Safety Report 11944214 (Version 1)
Quarter: 2016Q1

REPORT INFORMATION
  Report Type: Spontaneous
  Country: DE (occurrence: DE)
  Receive Date: 20160125
  Receipt Date: 20160125
  Transmission Date: 20160526
  Serious: Yes (Hospitalization, Congenital Anomaly, Other)
  Sender: FDA-Public Use
  Company Number: DE-DRREDDYS-GER/GER/16/0065490

PATIENT
  Age: 1 Day
  Sex: Female
  Weight: 3.52 kg

DRUGS (2)
  1. VENLAFAXINE [Suspect]
     Active Substance: VENLAFAXINE HYDROCHLORIDE
     Indication: PRODUCT USED FOR UNKNOWN INDICATION
     Route: 064
     Dates: start: 20140928, end: 20150610
  2. GYNVITAL GRAVIDA [Concomitant]
     Active Substance: HERBALS
     Indication: PRODUCT USED FOR UNKNOWN INDICATION
     Route: 064
     Dates: start: 20140928, end: 20150610

REACTIONS (7)
  - Transient tachypnoea of the newborn [Recovered/Resolved]
  - Bradycardia neonatal [Recovered/Resolved]
  - Atrial septal defect [Recovered/Resolved]
  - Neonatal hypoxia [Recovered/Resolved]
  - Ventricular septal defect [Not Recovered/Not Resolved]
  - Foetal exposure during pregnancy [Unknown]
  - Infantile apnoea [Recovered/Resolved]

NARRATIVE: CASE EVENT DATE: 20150610
